FAERS Safety Report 4338359-6 (Version None)
Quarter: 2004Q2

REPORT INFORMATION
  Report Type: 
  Country: None (occurrence: None)
  Receive Date: 20040414
  Receipt Date: 20040408
  Transmission Date: 20050107
  Serious: Yes (Other)
  Sender: FDA-Public Use
  Company Number: 200413999GDDC

PATIENT
  Age: 45 Year
  Sex: Male

DRUGS (3)
  1. BENZAMYCIN [Suspect]
     Indication: ROSACEA
     Dosage: DOSE: TOPICAL PREPARATION
     Route: 061
     Dates: start: 20040310, end: 20040313
  2. TETRACYCLINE [Concomitant]
  3. ASPIRIN [Concomitant]

REACTIONS (1)
  - SWELLING FACE [None]
